FAERS Safety Report 11551556 (Version 1)
Quarter: 2015Q3

REPORT INFORMATION
  Report Type: Spontaneous
  Country: GB (occurrence: GB)
  Receive Date: 20150925
  Receipt Date: 20150925
  Transmission Date: 20151125
  Serious: Yes (Hospitalization)
  Sender: FDA-Public Use
  Company Number: GB-009507513-1509GBR009309

PATIENT
  Age: 37 Year
  Sex: Female

DRUGS (10)
  1. RIFINAH [Concomitant]
     Active Substance: ISONIAZID\RIFAMPIN
  2. PREDNISOLONE. [Concomitant]
     Active Substance: PREDNISOLONE
  3. ACETAMINOPHEN. [Concomitant]
     Active Substance: ACETAMINOPHEN
  4. ACYCLOVIR. [Concomitant]
     Active Substance: ACYCLOVIR
  5. PYRIDOXINE [Concomitant]
     Active Substance: PYRIDOXINE
  6. RALTEGRAVIR POTASSIUM [Suspect]
     Active Substance: RALTEGRAVIR POTASSIUM
     Indication: ASYMPTOMATIC HIV INFECTION
     Route: 048
     Dates: start: 20150624, end: 20150903
  7. ONDANSETRON [Concomitant]
     Active Substance: ONDANSETRON
  8. TRAMADOL HYDROCHLORIDE. [Concomitant]
     Active Substance: TRAMADOL HYDROCHLORIDE
  9. ESOMEPRAZOLE [Concomitant]
     Active Substance: ESOMEPRAZOLE
  10. KIVEXA [Concomitant]
     Active Substance: ABACAVIR SULFATE\LAMIVUDINE

REACTIONS (1)
  - Pancreatitis acute [Recovered/Resolved]

NARRATIVE: CASE EVENT DATE: 20150901
